FAERS Safety Report 22053134 (Version 1)
Quarter: 2023Q1

REPORT INFORMATION
  Report Type: Spontaneous
  Country: US (occurrence: None)
  Receive Date: 20230301
  Receipt Date: 20230301
  Transmission Date: 20230417
  Serious: No
  Sender: FDA-Public Use
  Company Number: None

PATIENT
  Age: 84 Year
  Sex: Male
  Weight: 69.17 kg

DRUGS (11)
  1. ABIRATERONE ACETATE [Suspect]
     Active Substance: ABIRATERONE ACETATE
     Indication: Prostate cancer
     Dosage: 250 MG DAILY ORAL?
     Route: 048
     Dates: end: 20230301
  2. ALLOPURINOL [Concomitant]
     Active Substance: ALLOPURINOL
  3. CALCIUM [Concomitant]
  4. CLOPIDOGREL BISULFATE [Concomitant]
  5. DEXAMETHASONE [Concomitant]
  6. ELIGARD SUBCUTANEOUS KIT [Concomitant]
  7. FINASTERIDE [Concomitant]
  8. FLOMAX [Concomitant]
  9. LOSARTAN POTASSIUM [Concomitant]
  10. SIMVASTATIN [Concomitant]
  11. VITAMIN D3 [Concomitant]

REACTIONS (2)
  - Therapy cessation [None]
  - Prostate cancer [None]
